FAERS Safety Report 18382095 (Version 1)
Quarter: 2020Q4

REPORT INFORMATION
  Report Type: Spontaneous
  Country: JP (occurrence: JP)
  Receive Date: 20201014
  Receipt Date: 20201014
  Transmission Date: 20210114
  Serious: Yes (Death, Other)
  Sender: FDA-Public Use
  Company Number: JP-SAKK-2020SA283918AA

PATIENT

DRUGS (4)
  1. FLUDARA [Suspect]
     Active Substance: FLUDARABINE PHOSPHATE
     Indication: BONE MARROW CONDITIONING REGIMEN
     Dosage: 150 MG/MM2
     Route: 041
  2. MELPHALAN. [Concomitant]
     Active Substance: MELPHALAN
     Indication: BONE MARROW CONDITIONING REGIMEN
     Dosage: 100 MG/MM2
     Route: 065
  3. BUSULFAN. [Concomitant]
     Active Substance: BUSULFAN
     Indication: BONE MARROW CONDITIONING REGIMEN
     Dosage: 12.8 MG/KG
     Route: 065
  4. THYMOGLOBULINE [Suspect]
     Active Substance: LAPINE T-LYMPHOCYTE IMMUNE GLOBULIN
     Indication: BONE MARROW CONDITIONING REGIMEN
     Dosage: 5 MG/KG
     Route: 041

REACTIONS (2)
  - Cystitis haemorrhagic [Fatal]
  - Venoocclusive liver disease [Fatal]
